FAERS Safety Report 7897348 (Version 4)
Quarter: 2014Q1

REPORT INFORMATION
  Report Type: Spontaneous
  Country: US (occurrence: None)
  Receive Date: 20110301
  Receipt Date: 20140304
  Transmission Date: 20141002
  Serious: Yes (Other)
  Sender: FDA-Public Use
  Company Number: RB-04779-2010

PATIENT
  Age: 0 Year
  Sex: Female
  Weight: 3.58 kg

DRUGS (2)
  1. SUBOXONE [Suspect]
     Indication: DRUG DEPENDENCE
     Route: 064
     Dates: start: 2009, end: 20091109
  2. SUBUTEX 8 MG [Suspect]
     Indication: DRUG DEPENDENCE
     Dosage: 8 MG TID TRANSPLACENTAL, 8 MG TID TRANSMAMMARY
     Route: 064
     Dates: start: 2009, end: 2009

REACTIONS (3)
  - Exposure during breast feeding [None]
  - Drug withdrawal syndrome neonatal [None]
  - Foetal exposure during pregnancy [None]
